FAERS Safety Report 20208889 (Version 1)
Quarter: 2021Q4

REPORT INFORMATION
  Report Type: Spontaneous
  Country: DE (occurrence: DE)
  Receive Date: 20211220
  Receipt Date: 20211220
  Transmission Date: 20220303
  Serious: Yes (Hospitalization)
  Sender: FDA-Public Use
  Company Number: None

PATIENT
  Age: 38 Year
  Sex: Female

DRUGS (2)
  1. DICLOFENAC [Suspect]
     Active Substance: DICLOFENAC
     Indication: Product used for unknown indication
     Dosage: IF NECESSARY
     Route: 065
  2. ORTOTON [Concomitant]
     Indication: Product used for unknown indication
     Dosage: IF NECESSARY

REACTIONS (7)
  - Abdominal distension [Recovering/Resolving]
  - Fatigue [Recovering/Resolving]
  - Gastritis [Recovering/Resolving]
  - Flatulence [Recovering/Resolving]
  - Abdominal pain [Recovering/Resolving]
  - Eructation [Recovering/Resolving]
  - Abdominal pain upper [Recovering/Resolving]
